FAERS Safety Report 12992843 (Version 1)
Quarter: 2016Q4

REPORT INFORMATION
  Report Type: Report from Study
  Country: CA (occurrence: CA)
  Receive Date: 20161202
  Receipt Date: 20161202
  Transmission Date: 20170207
  Serious: Yes (Other)
  Sender: FDA-Public Use
  Company Number: CA-TEVA-715575ACC

PATIENT
  Sex: Female

DRUGS (1)
  1. COPAXONE [Suspect]
     Active Substance: GLATIRAMER ACETATE
     Indication: PRODUCT USED FOR UNKNOWN INDICATION
     Dosage: THE SUSPECT MEDICATION WAS TAKEN BY THE MOTHER. COPAXONE 20MG/ML- 1 A DAY.
     Route: 064
     Dates: start: 20150615, end: 201602

REACTIONS (2)
  - Neutropenia [Unknown]
  - Foetal exposure during pregnancy [Unknown]
